FAERS Safety Report 8884211 (Version 1)
Quarter: 2012Q4

REPORT INFORMATION
  Report Type: 
  Country: US (occurrence: US)
  Receive Date: 20121102
  Receipt Date: 20121102
  Transmission Date: 20130627
  Serious: No
  Sender: FDA-Public Use
  Company Number: US-ASTRAZENECA-2012SE13253

PATIENT
  Sex: Male

DRUGS (5)
  1. CRESTOR [Suspect]
     Indication: BLOOD CHOLESTEROL INCREASED
     Route: 048
     Dates: start: 2011, end: 201202
  2. METFORMIN [Concomitant]
     Indication: TYPE 2 DIABETES MELLITUS
  3. INSULIN [Concomitant]
     Indication: TYPE 2 DIABETES MELLITUS
  4. BYETTA [Concomitant]
     Indication: TYPE 2 DIABETES MELLITUS
  5. CO-ENZYME Q10 [Concomitant]

REACTIONS (3)
  - Blood glucose increased [Recovered/Resolved]
  - Myalgia [Unknown]
  - Pain in extremity [Unknown]
